FAERS Safety Report 22211940 (Version 1)
Quarter: 2023Q2

REPORT INFORMATION
  Report Type: Spontaneous
  Country: TH (occurrence: TH)
  Receive Date: 20230414
  Receipt Date: 20230414
  Transmission Date: 20230722
  Serious: Yes (Death, Hospitalization)
  Sender: FDA-Public Use
  Company Number: TH-MYLANLABS-2023M1039030

PATIENT
  Age: 51 Year
  Sex: Male

DRUGS (3)
  1. TENOFOVIR DISOPROXIL [Suspect]
     Active Substance: TENOFOVIR DISOPROXIL
     Indication: Autoimmune hepatitis
     Dosage: 300 MILLIGRAM, QD
     Route: 065
  2. PREDNISOLONE [Suspect]
     Active Substance: PREDNISOLONE
     Indication: Autoimmune hepatitis
     Dosage: 30 MILLIGRAM, QD, FOR 1 MONTH
     Route: 065
  3. AZATHIOPRINE [Suspect]
     Active Substance: AZATHIOPRINE
     Indication: Autoimmune hepatitis
     Dosage: 50 MILLIGRAM, QD
     Route: 065

REACTIONS (3)
  - Nocardiosis [Fatal]
  - Intracranial aneurysm [Fatal]
  - Ruptured cerebral aneurysm [Fatal]
